FAERS Safety Report 8374374-3 (Version None)
Quarter: 2012Q2

REPORT INFORMATION
  Report Type: 
  Country: None (occurrence: None)
  Receive Date: 20120521
  Receipt Date: 20120507
  Transmission Date: 20120825
  Serious: No
  Sender: FDA-Public Use
  Company Number: US-ASTRAZENECA-2005UW07026

PATIENT
  Age: 58 Year
  Sex: Female
  Weight: 89.4 kg

DRUGS (5)
  1. CRESTOR [Suspect]
     Indication: BLOOD CHOLESTEROL INCREASED
     Route: 048
     Dates: start: 20030101
  2. VITAMIN B-12 [Concomitant]
  3. COQ10 [Concomitant]
  4. ZETIA [Concomitant]
  5. VITAMIN C AND E [Concomitant]

REACTIONS (2)
  - LIMB DISCOMFORT [None]
  - HAEMATURIA [None]
